FAERS Safety Report 10713888 (Version 1)
Quarter: 2015Q1

REPORT INFORMATION
  Report Type: Spontaneous
  Country: KR (occurrence: KR)
  Receive Date: 20150115
  Receipt Date: 20150115
  Transmission Date: 20150721
  Serious: Yes (Hospitalization)
  Sender: FDA-Public Use
  Company Number: PHHY2015KR002819

PATIENT
  Age: 67 Year
  Sex: Female

DRUGS (2)
  1. ACETYLSALICYLIC ACID [Suspect]
     Active Substance: ASPIRIN
     Indication: ANTIPLATELET THERAPY
     Route: 065
  2. CLOPIDOGREL [Suspect]
     Active Substance: CLOPIDOGREL BISULFATE
     Indication: ANTIPLATELET THERAPY
     Route: 065

REACTIONS (11)
  - Hyperreflexia [Recovered/Resolved]
  - Seizure [Recovered/Resolved]
  - Electroencephalogram abnormal [Recovered/Resolved]
  - Epilepsy [Recovered/Resolved]
  - Cerebral hyperperfusion syndrome [Recovered/Resolved]
  - Stupor [Recovered/Resolved]
  - Generalised tonic-clonic seizure [Recovered/Resolved]
  - Blood pressure increased [Recovered/Resolved]
  - Vasogenic cerebral oedema [Recovered/Resolved]
  - Muscular weakness [Recovered/Resolved]
  - Status epilepticus [Recovered/Resolved]
